FAERS Safety Report 15854412 (Version 1)
Quarter: 2019Q1

REPORT INFORMATION
  Report Type: Spontaneous
  Country: US (occurrence: US)
  Receive Date: 20190117
  Receipt Date: 20190117
  Transmission Date: 20190417
  Serious: No
  Sender: FDA-Public Use
  Company Number: None

PATIENT
  Age: 67 Year

DRUGS (1)
  1. NUCALA [Suspect]
     Active Substance: MEPOLIZUMAB
     Route: 058

REACTIONS (3)
  - Cystitis [None]
  - Rhinorrhoea [None]
  - Tongue cyst [None]

NARRATIVE: CASE EVENT DATE: 20190117
